FAERS Safety Report 4844569-1 (Version None)
Quarter: 2005Q4

REPORT INFORMATION
  Report Type: 
  Country: None (occurrence: None)
  Receive Date: 20051125
  Receipt Date: 20051115
  Transmission Date: 20060501
  Serious: Yes (Death)
  Sender: FDA-Public Use
  Company Number: 2005-US-01073

PATIENT
  Sex: Female

DRUGS (1)
  1. CLOZAPINE [Suspect]
     Indication: SCHIZOPHRENIA
     Dosage: 500 MG, ORAL
     Route: 048
     Dates: start: 19991001, end: 20050901

REACTIONS (2)
  - BLOOD POTASSIUM DECREASED [None]
  - CARDIAC DISORDER [None]
